FAERS Safety Report 16735457 (Version 1)
Quarter: 2019Q3

REPORT INFORMATION
  Report Type: Spontaneous
  Country: CH (occurrence: CH)
  Receive Date: 20190823
  Receipt Date: 20190823
  Transmission Date: 20191005
  Serious: Yes (Death, Life-Threatening, Hospitalization, Other)
  Sender: FDA-Public Use
  Company Number: CH-PFIZER INC-2019356144

PATIENT
  Age: 46 Year
  Sex: Male

DRUGS (15)
  1. LANTUS [Concomitant]
     Active Substance: INSULIN GLARGINE
     Dosage: ACCORDING TO SCHEME
     Route: 058
  2. DAFALGAN [Suspect]
     Active Substance: ACETAMINOPHEN
     Indication: ANALGESIC THERAPY
     Dosage: 500 MG, AS NEEDED
     Route: 048
     Dates: start: 2018, end: 20190628
  3. ATRIANCE [Suspect]
     Active Substance: NELARABINE
     Indication: T-CELL LYMPHOMA
     Dosage: 2200 MG, DAILY
     Route: 042
     Dates: start: 20190527, end: 20190531
  4. VALTREX [Suspect]
     Active Substance: VALACYCLOVIR HYDROCHLORIDE
     Indication: ANTIVIRAL PROPHYLAXIS
     Dosage: 500 MG, 2X/DAY
     Route: 048
     Dates: start: 2018, end: 20190718
  5. PIPERACILINA/TAZOBACTAM SANDOZ [Suspect]
     Active Substance: PIPERACILLIN SODIUM\TAZOBACTAM SODIUM
     Dosage: 4.5 G, 3X/DAY
     Route: 042
     Dates: start: 20190716, end: 20190717
  6. VITAMIN D3 [Concomitant]
     Active Substance: CHOLECALCIFEROL
     Dosage: 2 DROPS, DAILY (2-0-0-0 )
     Route: 048
  7. NOVORAPID [Concomitant]
     Active Substance: INSULIN ASPART
     Dosage: ACCORDING TO SCHEME
     Route: 058
  8. BACTRIM [Suspect]
     Active Substance: SULFAMETHOXAZOLE\TRIMETHOPRIM
     Indication: ANTIBIOTIC PROPHYLAXIS
     Dosage: 160MG/800MG 1-0-0-0 3X/WEEK
     Route: 048
     Dates: start: 2018, end: 20190719
  9. PIPERACILINA/TAZOBACTAM SANDOZ [Suspect]
     Active Substance: PIPERACILLIN SODIUM\TAZOBACTAM SODIUM
     Indication: CHOLECYSTITIS
     Dosage: 4.5 G, 3X/DAY
     Route: 042
     Dates: start: 20190628, end: 20190702
  10. ACIDUM FOLICUM [Concomitant]
     Active Substance: FOLIC ACID
     Dosage: 5 MG, 1X/DAY (5 MG 1-0- 0-0)
     Route: 048
  11. VORICONAZOLE. [Suspect]
     Active Substance: VORICONAZOLE
     Indication: CANDIDA INFECTION
     Dosage: 300 OR 200 MG/DAY
     Route: 048
     Dates: start: 20190330, end: 20190717
  12. NEXIUM [Suspect]
     Active Substance: ESOMEPRAZOLE MAGNESIUM
     Dosage: 40 MG, 2X/DAY(40 MG 1-0-1-0 )
     Route: 048
     Dates: start: 2018, end: 20190702
  13. ATRIANCE [Suspect]
     Active Substance: NELARABINE
     Dosage: 2200 MG, DAILY
     Route: 042
     Dates: start: 20190617, end: 20190621
  14. JADENU [Suspect]
     Active Substance: DEFERASIROX
     Indication: IRON OVERLOAD
     Dosage: 360 MG, 2X/DAY (EVERY 12 HOURS)
     Route: 048
     Dates: start: 2018, end: 20190717
  15. SPIRICORT [Concomitant]
     Active Substance: PREDNISOLONE
     Dosage: 5 MG, 1X/DAY (5MG 1-0-0-0)
     Route: 048

REACTIONS (18)
  - Cholecystitis [Unknown]
  - Dyspnoea [Unknown]
  - Multiple organ dysfunction syndrome [Fatal]
  - Hepatic failure [Fatal]
  - Blood lactate dehydrogenase increased [Fatal]
  - Alanine aminotransferase increased [Fatal]
  - Fatigue [Unknown]
  - Tachycardia [Unknown]
  - Drug-induced liver injury [Fatal]
  - Aspartate aminotransferase increased [Fatal]
  - Gamma-glutamyltransferase increased [Fatal]
  - Disease progression [Fatal]
  - Pyrexia [Unknown]
  - Atypical pneumonia [Unknown]
  - General physical health deterioration [Unknown]
  - Blood alkaline phosphatase increased [Fatal]
  - Respiratory failure [Unknown]
  - C-reactive protein increased [Unknown]

NARRATIVE: CASE EVENT DATE: 201906
